FAERS Safety Report 5080506-5 (Version None)
Quarter: 2006Q3

REPORT INFORMATION
  Report Type: 
  Country: None (occurrence: None)
  Receive Date: 20060720
  Receipt Date: 20051024
  Transmission Date: 20061208
  Serious: Yes (Death)
  Sender: FDA-Public Use
  Company Number: 2005146266

PATIENT
  Age: 69 Year
  Sex: Female

DRUGS (4)
  1. CELEBREX [Suspect]
     Indication: PAIN
     Dates: start: 20011001, end: 20041201
  2. NEURONTIN [Concomitant]
  3. HYDROCODONE (HYDROCODONE) [Concomitant]
  4. SKELAXIN [Concomitant]

REACTIONS (1)
  - MYOCARDIAL INFARCTION [None]
